FAERS Safety Report 4464947-2 (Version None)
Quarter: 2004Q4

REPORT INFORMATION
  Report Type: 
  Country: None (occurrence: None)
  Receive Date: 20041004
  Receipt Date: 20040401
  Transmission Date: 20050328
  Serious: No
  Sender: FDA-Public Use
  Company Number: 368209

PATIENT
  Age: 79 Year
  Sex: Male

DRUGS (8)
  1. COREG [Suspect]
     Dosage: 6.25MG TWICE PER DAY
     Route: 048
  2. FLOMAX [Concomitant]
  3. LEVAQUIN [Concomitant]
  4. NASACORT [Concomitant]
  5. VITAMIN E [Concomitant]
  6. VITAMIN C [Concomitant]
  7. SELENIUM TRACE METAL ADDITIVE [Concomitant]
  8. MULTI-VITAMIN [Concomitant]

REACTIONS (3)
  - DRY THROAT [None]
  - DYSPNOEA [None]
  - INSOMNIA [None]
